FAERS Safety Report 23061857 (Version 3)
Quarter: 2023Q4

REPORT INFORMATION
  Report Type: Spontaneous
  Country: TW (occurrence: TW)
  Receive Date: 20231013
  Receipt Date: 20231026
  Transmission Date: 20240110
  Serious: Yes (Hospitalization)
  Sender: FDA-Public Use
  Company Number: TW-BoehringerIngelheim-2023-BI-266647

PATIENT
  Age: 87 Year
  Sex: Male
  Weight: 76 kg

DRUGS (1)
  1. PRAXBIND [Suspect]
     Active Substance: IDARUCIZUMAB
     Indication: Surgery

REACTIONS (2)
  - Cerebral haemorrhage [Not Recovered/Not Resolved]
  - Thrombectomy [Unknown]

NARRATIVE: CASE EVENT DATE: 20231013
